FAERS Safety Report 5474605-3 (Version None)
Quarter: 2007Q3

REPORT INFORMATION
  Report Type: 
  Country: None (occurrence: None)
  Receive Date: 20070928
  Receipt Date: 20070914
  Transmission Date: 20080115
  Serious: Yes (Hospitalization)
  Sender: FDA-Public Use
  Company Number: DSA_30334_2007

PATIENT
  Age: 72 Year
  Sex: Male

DRUGS (20)
  1. VASOTEC [Suspect]
     Indication: BLOOD PRESSURE
     Dosage: 2.5 MG, BID; ORAL =, (2;5 MG QD, ORAL)
     Route: 048
     Dates: start: 20060101, end: 20070621
  2. VASOTEC [Suspect]
     Indication: CARDIAC DISORDER
     Dosage: 2.5 MG, BID; ORAL =, (2;5 MG QD, ORAL)
     Route: 048
     Dates: start: 20060101, end: 20070621
  3. VASOTEC [Suspect]
     Indication: BLOOD PRESSURE
     Dosage: 2.5 MG, BID; ORAL =, (2;5 MG QD, ORAL)
     Route: 048
     Dates: start: 20070622, end: 20070712
  4. VASOTEC [Suspect]
     Indication: CARDIAC DISORDER
     Dosage: 2.5 MG, BID; ORAL =, (2;5 MG QD, ORAL)
     Route: 048
     Dates: start: 20070622, end: 20070712
  5. LISINOPRIL [Suspect]
     Indication: BLOOD PRESSURE
     Dosage: 10 MG QD;
     Dates: start: 20070713, end: 20070716
  6. LISINOPRIL [Suspect]
     Indication: CARDIAC DISORDER
     Dosage: 10 MG QD;
     Dates: start: 20070713, end: 20070716
  7. BISOPROLOL FUMARATE [Concomitant]
  8. ALBUTEROL [Concomitant]
  9. SPIRIVA [Concomitant]
  10. FORADIL [Concomitant]
  11. ASMANEX TWISTHALER [Concomitant]
  12. XOPENEX [Concomitant]
  13. FOSAMAX [Concomitant]
  14. MUCINEX [Concomitant]
  15. CALCIUM D [Concomitant]
  16. ENTERIC ASPIRIN [Concomitant]
  17. STOOL SOFTENER [Concomitant]
  18. ALPRAZOLAM [Concomitant]
  19. SIMVASTATIN [Concomitant]
  20. SSKI [Concomitant]

REACTIONS (7)
  - COAGULOPATHY [None]
  - DYSURIA [None]
  - HAEMORRHAGE URINARY TRACT [None]
  - LARYNGITIS [None]
  - LOCAL SWELLING [None]
  - PHARYNGOLARYNGEAL PAIN [None]
  - PROSTATIC SPECIFIC ANTIGEN INCREASED [None]
